FAERS Safety Report 5498984-6 (Version None)
Quarter: 2007Q4

REPORT INFORMATION
  Report Type: 
  Country: None (occurrence: None)
  Receive Date: 20071026
  Receipt Date: 20070511
  Transmission Date: 20080405
  Serious: No
  Sender: FDA-Public Use
  Company Number: A0651037A

PATIENT
  Sex: Female

DRUGS (1)
  1. ADVAIR DISKUS 100/50 [Suspect]
     Dosage: 2PUFF UNKNOWN
     Route: 055
     Dates: start: 20070511

REACTIONS (3)
  - BURNING SENSATION [None]
  - INCORRECT DRUG DOSAGE FORM ADMINISTERED [None]
  - PALPITATIONS [None]
